FAERS Safety Report 12439865 (Version 7)
Quarter: 2024Q3

REPORT INFORMATION
  Report Type: Spontaneous
  Country: NL (occurrence: NL)
  Receive Date: 20160606
  Receipt Date: 20240913
  Transmission Date: 20241017
  Serious: Yes (Death, Life-Threatening, Hospitalization, Other)
  Sender: NOVARTIS
  Company Number: PHHY2016NL073198

PATIENT
  Age: 48 Year
  Sex: Male

DRUGS (15)
  1. CEFTRIAXONE [Suspect]
     Active Substance: CEFTRIAXONE\CEFTRIAXONE SODIUM
     Indication: Spontaneous bacterial peritonitis
     Dosage: 2000 MG, QD
     Route: 042
  2. CEFTRIAXONE [Suspect]
     Active Substance: CEFTRIAXONE\CEFTRIAXONE SODIUM
     Indication: Escherichia peritonitis
  3. PIPERACILLIN SODIUM\TAZOBACTAM SODIUM [Suspect]
     Active Substance: PIPERACILLIN SODIUM\TAZOBACTAM SODIUM
     Indication: Spontaneous bacterial peritonitis
     Dosage: 4000 MG, TID
     Route: 042
  4. PIPERACILLIN SODIUM\TAZOBACTAM SODIUM [Suspect]
     Active Substance: PIPERACILLIN SODIUM\TAZOBACTAM SODIUM
     Dosage: 4000 MG, TID
     Route: 042
  5. FLUCONAZOLE [Suspect]
     Active Substance: FLUCONAZOLE
     Indication: Antifungal prophylaxis
     Dosage: 100 MG, QD
     Route: 042
  6. BASILIXIMAB [Suspect]
     Active Substance: BASILIXIMAB
     Indication: Liver transplant
     Dosage: ON DAY 0 AND DAY 4 AFTER TRANSPLANTATION
     Route: 042
  7. HYDROCORTISONE [Suspect]
     Active Substance: HYDROCORTISONE\HYDROCORTISONE ACETATE
     Indication: Liver transplant
     Dosage: 4 MG, QH
     Route: 042
  8. MEROPENEM [Suspect]
     Active Substance: MEROPENEM
     Indication: Spontaneous bacterial peritonitis
     Dosage: 1000 MG, BID
     Route: 042
  9. MEROPENEM [Suspect]
     Active Substance: MEROPENEM
     Dosage: 1000 MG, Q12H
     Route: 042
  10. VORICONAZOLE [Suspect]
     Active Substance: VORICONAZOLE
     Indication: Trichosporon infection
     Dosage: 200 MG, BID
     Route: 042
  11. AMPHOTERICIN B [Suspect]
     Active Substance: AMPHOTERICIN B
     Indication: Prophylaxis
     Dosage: 0.3 MG/KG, QD
     Route: 042
  12. AMPHOTERICIN B [Suspect]
     Active Substance: AMPHOTERICIN B
     Indication: Prophylaxis
  13. POLYMYXIN B [Concomitant]
     Active Substance: POLYMYXIN B
     Indication: Product used for unknown indication
     Dosage: 2 %, UNK
     Route: 065
  14. TOBRAMYCIN [Concomitant]
     Active Substance: TOBRAMYCIN\TOBRAMYCIN SULFATE
     Indication: Product used for unknown indication
     Dosage: 2 %, UNK
     Route: 065
  15. AMPHOTERICIN B [Concomitant]
     Active Substance: AMPHOTERICIN B
     Indication: Prophylaxis
     Dosage: 5 MG/KG, QD
     Route: 042

REACTIONS (5)
  - Trichosporon infection [Fatal]
  - Pathogen resistance [Fatal]
  - Cholangitis infective [Not Recovered/Not Resolved]
  - Drug resistance [Unknown]
  - Treatment failure [Unknown]
